FAERS Safety Report 6490226-8 (Version None)
Quarter: 2009Q4

REPORT INFORMATION
  Report Type: 
  Country: None (occurrence: None)
  Receive Date: 20091211
  Receipt Date: 20091203
  Transmission Date: 20100525
  Serious: Yes (Hospitalization)
  Sender: FDA-Public Use
  Company Number: DE-ASTRAZENECA-2009SE30220

PATIENT

DRUGS (2)
  1. SEROQUEL XR [Suspect]
     Route: 048
  2. DIAZEPAM [Interacting]

REACTIONS (3)
  - BRADYCARDIA [None]
  - DISTURBANCE IN ATTENTION [None]
  - POTENTIATING DRUG INTERACTION [None]
